FAERS Safety Report 9416333 (Version 1)
Quarter: 2013Q1

REPORT INFORMATION
  Report Type: Spontaneous
  Country: US (occurrence: None)
  Receive Date: 20130314
  Receipt Date: 20130314
  Transmission Date: 20140127
  Serious: Yes (Other)
  Sender: FDA-Public Use
  Company Number: None

PATIENT
  Sex: Female
  Weight: 200 kg

DRUGS (1)
  1. EQUATE EQCOUGH [Suspect]
     Dosage: 4-6 HRS
     Route: 048
     Dates: start: 201301

REACTIONS (6)
  - Abdominal discomfort [None]
  - Headache [None]
  - Vomiting [None]
  - Diarrhoea [None]
  - Product deposit [None]
  - Impaired work ability [None]
